FAERS Safety Report 6875727-2 (Version None)
Quarter: 2010Q3

REPORT INFORMATION
  Report Type: 
  Country: None (occurrence: None)
  Receive Date: 20100727
  Receipt Date: 20071004
  Transmission Date: 20110219
  Serious: Yes (Hospitalization, Other)
  Sender: FDA-Public Use
  Company Number: US-PFIZER INC-2006108802

PATIENT
  Sex: Male
  Weight: 90.7 kg

DRUGS (5)
  1. CELEBREX [Suspect]
     Indication: PAIN
     Route: 048
     Dates: start: 20030701
  2. VIOXX [Suspect]
     Indication: PAIN
     Route: 048
     Dates: start: 19990901, end: 20030701
  3. ACETAMINOPHEN [Concomitant]
     Dates: start: 20020501, end: 20020601
  4. NEURONTIN [Concomitant]
     Dates: start: 20020501, end: 20020701
  5. ZYBAN [Concomitant]
     Dates: start: 20020101, end: 20020201

REACTIONS (2)
  - CARDIAC FAILURE CONGESTIVE [None]
  - MYOCARDIAL INFARCTION [None]
